FAERS Safety Report 7431164-3 (Version None)
Quarter: 2011Q2

REPORT INFORMATION
  Report Type: 
  Country: None (occurrence: None)
  Receive Date: 20110421
  Receipt Date: 20110419
  Transmission Date: 20111010
  Serious: Yes (Hospitalization)
  Sender: FDA-Public Use
  Company Number: US-B.I. PHARMACEUTICALS,INC./RIDGEFIELD-2011-BP-03464BP

PATIENT
  Sex: Male

DRUGS (16)
  1. MELOXICAM [Concomitant]
     Indication: ARTHRITIS
     Dosage: 15 MG
     Route: 048
  2. LOSARTAN [Concomitant]
     Indication: CARDIAC DISORDER
     Dosage: 100 MG
     Route: 048
  3. SIMVASTATIN [Concomitant]
     Indication: CARDIAC DISORDER
     Dosage: 40 MG
     Route: 048
  4. DILTIAZEM [Concomitant]
  5. ASCORBIC ACID [Concomitant]
  6. OMEPRAZOLE [Concomitant]
     Indication: DYSPEPSIA
     Dosage: 20 MG
     Route: 048
  7. HYDROCHLOROTHIAZIDE [Concomitant]
     Indication: FLUID RETENTION
     Dosage: 12.5 MG
     Route: 048
  8. PRADAXA [Suspect]
     Indication: ATRIAL FIBRILLATION
     Dosage: 300 MG
     Route: 048
     Dates: start: 20110107
  9. ALLOPURINOL [Concomitant]
     Indication: GOUT
     Dosage: 300 MG
     Route: 048
  10. EFFIENT [Concomitant]
     Indication: ANTICOAGULANT THERAPY
     Dosage: 10 MG
     Route: 048
  11. FISH OIL [Concomitant]
  12. POTASSIUM CITRATE [Concomitant]
     Indication: NEPHROLITHIASIS
     Dosage: 6480 MG
     Route: 048
  13. COLCHICINE [Concomitant]
     Indication: GOUT
     Dosage: 0.6 MG
     Route: 048
  14. PROPAFENONE [Concomitant]
     Indication: CARDIAC DISORDER
     Dosage: 450 MG
     Route: 048
  15. PRISTIQ [Concomitant]
     Indication: DEPRESSION
     Dosage: 50 MG
     Route: 048
  16. ALLOPURINOL [Concomitant]
     Indication: NEPHROLITHIASIS

REACTIONS (2)
  - RECTAL HAEMORRHAGE [None]
  - DIVERTICULUM [None]
